FAERS Safety Report 21168260 (Version 1)
Quarter: 2022Q3

REPORT INFORMATION
  Report Type: Spontaneous
  Country: US (occurrence: None)
  Receive Date: 20220803
  Receipt Date: 20220803
  Transmission Date: 20221027
  Serious: Yes (Hospitalization, Other)
  Sender: FDA-Public Use
  Company Number: None

PATIENT
  Age: 29 Year
  Sex: Female
  Weight: 97.52 kg

DRUGS (12)
  1. ZIPRASIDONE [Suspect]
     Active Substance: ZIPRASIDONE
  2. TRAZODONE [Suspect]
     Active Substance: TRAZODONE HYDROCHLORIDE
  3. BUSPIRONE [Suspect]
     Active Substance: BUSPIRONE HYDROCHLORIDE
  4. LEVOTHYROXINE [Suspect]
     Active Substance: LEVOTHYROXINE
  5. NIFEDIPINE [Suspect]
     Active Substance: NIFEDIPINE
  6. MECLIZINE [Suspect]
     Active Substance: MECLIZINE HYDROCHLORIDE
  7. ONDANSETRON [Suspect]
     Active Substance: ONDANSETRON
  8. LABETALOL [Suspect]
     Active Substance: LABETALOL\LABETALOL HYDROCHLORIDE
  9. SERTRALINE [Suspect]
     Active Substance: SERTRALINE HYDROCHLORIDE
  10. OLANZAPINE [Suspect]
     Active Substance: OLANZAPINE
  11. ASPIRIN [Suspect]
     Active Substance: ASPIRIN
  12. QUETIAPINE [Suspect]
     Active Substance: QUETIAPINE

REACTIONS (4)
  - Gestational hypertension [None]
  - Maternal exposure during pregnancy [None]
  - Foetal exposure during pregnancy [None]
  - Mental disorder [None]

NARRATIVE: CASE EVENT DATE: 20200228
